FAERS Safety Report 5936335-0 (Version None)
Quarter: 2008Q4

REPORT INFORMATION
  Report Type: 
  Country: None (occurrence: None)
  Receive Date: 20081020
  Receipt Date: 20080701
  Transmission Date: 20090506
  Serious: Yes (Other)
  Sender: FDA-Public Use
  Company Number: US-WYE-H04877908

PATIENT
  Age: 84 Year
  Sex: Female
  Weight: 53.57 kg

DRUGS (3)
  1. ADVIL PM [Suspect]
     Indication: INSOMNIA
     Dosage: 1 CAPLET AS NEEDED, ORAL
     Route: 048
     Dates: start: 20080101
  2. CELEBREX [Concomitant]
  3. FOSAMAX [Concomitant]

REACTIONS (2)
  - DRUG EFFECT PROLONGED [None]
  - SOMNOLENCE [None]
